FAERS Safety Report 8190085-1 (Version None)
Quarter: 2012Q1

REPORT INFORMATION
  Report Type: 
  Country: None (occurrence: None)
  Receive Date: 20120307
  Receipt Date: 20120307
  Transmission Date: 20120608
  Serious: Yes (Other)
  Sender: FDA-Public Use
  Company Number: None

PATIENT
  Age: 52 Year
  Sex: Female
  Weight: 77.11 kg

DRUGS (4)
  1. CELEBREX [Concomitant]
     Route: 048
  2. ELAVIL [Concomitant]
     Route: 048
  3. SEROQUEL [Suspect]
     Indication: ANXIETY
     Dosage: 50.0 MG
     Route: 048
     Dates: start: 20060103, end: 20120229
  4. PROZAC [Concomitant]
     Route: 048

REACTIONS (7)
  - COGNITIVE DISORDER [None]
  - ECONOMIC PROBLEM [None]
  - NO THERAPEUTIC RESPONSE [None]
  - WEIGHT INCREASED [None]
  - HYPOTHYROIDISM [None]
  - BACK PAIN [None]
  - AMNESIA [None]
